FAERS Safety Report 5164073-3 (Version None)
Quarter: 2006Q4

REPORT INFORMATION
  Report Type: 
  Country: None (occurrence: None)
  Receive Date: 20061124
  Receipt Date: 20061109
  Transmission Date: 20070319
  Serious: Yes (Death)
  Sender: FDA-Public Use
  Company Number: 2006141160

PATIENT
  Age: 63 Year

DRUGS (3)
  1. DIPHENHYDRAMINE HCL [Suspect]
     Indication: SUICIDE ATTEMPT
     Dosage: UNSPECIFIED; ORAL
     Route: 048
  2. PHENOBARBITAL TAB [Suspect]
     Indication: SUICIDE ATTEMPT
     Dosage: UNSPECIFIED; ORAL
     Route: 048
  3. CARBON MONOXIDE                           (CARBON MONOXIDE) [Suspect]
     Indication: SUICIDE ATTEMPT
     Dosage: UNSPECIFIED, INHALATION
     Route: 055

REACTIONS (2)
  - CARDIO-RESPIRATORY ARREST [None]
  - COMPLETED SUICIDE [None]
